FAERS Safety Report 4838570-1 (Version None)
Quarter: 2005Q4

REPORT INFORMATION
  Report Type: 
  Country: None (occurrence: None)
  Receive Date: 20051123
  Receipt Date: 20051123
  Transmission Date: 20060501
  Serious: No
  Sender: FDA-Public Use
  Company Number: None

PATIENT
  Age: 58 Year
  Sex: Male
  Weight: 84.1 kg

DRUGS (4)
  1. IRON DEXTRAN [Suspect]
  2. HYDROCODONE 5/ACETAMINOPHEN [Concomitant]
  3. PHOSPHATES ENEMA [Concomitant]
  4. LACTULOSE 10GM/15ML SYRUP [Concomitant]

REACTIONS (3)
  - ANXIETY [None]
  - ARTHRALGIA [None]
  - SYNCOPE [None]
